FAERS Safety Report 6696124-9 (Version None)
Quarter: 2010Q2

REPORT INFORMATION
  Report Type: 
  Country: None (occurrence: None)
  Receive Date: 20100426
  Receipt Date: 20100414
  Transmission Date: 20101027
  Serious: Yes (Other)
  Sender: FDA-Public Use
  Company Number: FR-AMGEN-US407330

PATIENT
  Sex: Female

DRUGS (2)
  1. ENBREL [Suspect]
     Indication: SPONDYLITIS
     Dosage: UNKNOWN
     Route: 058
     Dates: end: 20080830
  2. HUMIRA [Suspect]
     Indication: SPONDYLITIS
     Route: 058
     Dates: start: 20080101

REACTIONS (2)
  - CERVICAL DYSPLASIA [None]
  - DISEASE RECURRENCE [None]
